FAERS Safety Report 5739792-8 (Version None)
Quarter: 2008Q2

REPORT INFORMATION
  Report Type: 
  Country: None (occurrence: None)
  Receive Date: 20080512
  Receipt Date: 20080512
  Transmission Date: 20081010
  Serious: Yes (Death)
  Sender: FDA-Public Use
  Company Number: None

PATIENT
  Age: 43 Year
  Sex: Male
  Weight: 95.2554 kg

DRUGS (1)
  1. CHANTIX [Suspect]
     Indication: SMOKING CESSATION THERAPY
     Dosage: .05M  3 DAYS ONCE A DAY PO;  .1M  4-7 TWICE A DAY PO
     Route: 048
     Dates: start: 20080414, end: 20080420

REACTIONS (6)
  - COMPLETED SUICIDE [None]
  - CONFUSIONAL STATE [None]
  - FEAR [None]
  - INSOMNIA [None]
  - NIGHTMARE [None]
  - PARANOIA [None]
